FAERS Safety Report 9129483 (Version 1)
Quarter: 2013Q1

REPORT INFORMATION
  Report Type: Spontaneous
  Country: US (occurrence: US)
  Receive Date: 20130125
  Receipt Date: 20130125
  Transmission Date: 20140127
  Serious: No
  Sender: FDA-Public Use
  Company Number: US-PFIZER INC-2013031425

PATIENT
  Sex: Female

DRUGS (2)
  1. ADVIL [Suspect]
     Indication: SCIATICA
     Dosage: UNK, 2X/DAY
     Dates: start: 2012
  2. CORGARD [Concomitant]
     Indication: HYPERTENSION
     Dosage: UNK

REACTIONS (3)
  - Flatulence [Unknown]
  - Diarrhoea [Unknown]
  - Gastrointestinal sounds abnormal [Unknown]
